FAERS Safety Report 4895689-7 (Version None)
Quarter: 2005Q4

REPORT INFORMATION
  Report Type: 
  Country: None (occurrence: None)
  Receive Date: 20051220
  Receipt Date: 20051013
  Transmission Date: 20060501
  Serious: Yes (Hospitalization)
  Sender: FDA-Public Use
  Company Number: US154391

PATIENT
  Sex: Female

DRUGS (1)
  1. ENBREL [Suspect]
     Indication: PSORIASIS

REACTIONS (4)
  - CYTOMEGALOVIRUS INFECTION [None]
  - HYPOAESTHESIA [None]
  - LEIOMYOSARCOMA [None]
  - PNEUMOCYSTIS JIROVECI PNEUMONIA [None]
